FAERS Safety Report 9797124 (Version 1)
Quarter: 2014Q1

REPORT INFORMATION
  Report Type: Spontaneous
  Country: GB (occurrence: GB)
  Receive Date: 20140106
  Receipt Date: 20140106
  Transmission Date: 20141002
  Serious: Yes (Other)
  Sender: FDA-Public Use
  Company Number: PHFR2013GB007408

PATIENT
  Sex: Female

DRUGS (3)
  1. DICLOFENAC [Suspect]
     Dosage: 50 MG, TID
     Route: 048
  2. EPIZOL [Concomitant]
     Dosage: UNK UKN, UNK
  3. CO-CODAMOL [Concomitant]
     Dosage: UNK UKN, UNK

REACTIONS (2)
  - Skin disorder [Not Recovered/Not Resolved]
  - Eye swelling [Not Recovered/Not Resolved]
